FAERS Safety Report 7001645-5 (Version None)
Quarter: 2010Q3

REPORT INFORMATION
  Report Type: 
  Country: None (occurrence: None)
  Receive Date: 20100920
  Receipt Date: 20100909
  Transmission Date: 20110219
  Serious: Yes (Other)
  Sender: FDA-Public Use
  Company Number: GB-GILEAD-2010-0029434

PATIENT
  Sex: Male

DRUGS (5)
  1. TRUVADA [Suspect]
     Indication: HIV INFECTION
     Route: 048
     Dates: start: 20081216, end: 20100301
  2. TMC278 [Suspect]
     Indication: HIV INFECTION
     Dates: start: 20081216, end: 20091116
  3. CALCICHEW [Concomitant]
     Dates: start: 20090409
  4. BETNOVATE [Concomitant]
     Dates: start: 20090424
  5. PARACETAMOL [Concomitant]
     Dates: start: 20090312

REACTIONS (1)
  - GLOMERULONEPHRITIS MEMBRANOUS [None]
